FAERS Safety Report 7810769-1 (Version None)
Quarter: 2011Q4

REPORT INFORMATION
  Report Type: 
  Country: None (occurrence: None)
  Receive Date: 20111006
  Receipt Date: 20111006
  Transmission Date: 20120403
  Serious: Yes (Other)
  Sender: FDA-Public Use
  Company Number: 201110872

PATIENT
  Sex: Male

DRUGS (7)
  1. URSO 250 [Concomitant]
  2. PANTOSIN [Concomitant]
  3. BACLOFEN [Suspect]
     Indication: MUSCLE SPASTICITY
     Dosage: 120 MCG, DAILY, INTRATHECAL
     Route: 037
  4. LORAZEPAM [Concomitant]
  5. LIPITOR [Concomitant]
  6. MAGNESIUM SULFATE [Concomitant]
  7. SELBEX [Concomitant]

REACTIONS (6)
  - PYREXIA [None]
  - BLOOD CREATINE PHOSPHOKINASE INCREASED [None]
  - CONDITION AGGRAVATED [None]
  - MUSCLE SPASTICITY [None]
  - DRUG TOLERANCE [None]
  - DRUG WITHDRAWAL SYNDROME [None]
